FAERS Safety Report 8091372 (Version 2)
Quarter: 2012Q4

REPORT INFORMATION
  Report Type: 
  Country: IT (occurrence: US)
  Receive Date: 20110816
  Receipt Date: 20121005
  Transmission Date: 20130627
  Serious: Yes (Death, Other)
  Sender: FDA-Public Use
  Company Number: US-RANBAXY-2011US-46789

PATIENT
  Age: 55 Year
  Sex: Male

DRUGS (1)
  1. CIPROFLOXACIN [Suspect]
     Indication: PRODUCT USED FOR UNKNOWN INDICATION
     Dosage: UNK
     Route: 065

REACTIONS (4)
  - Liver injury [Unknown]
  - Peritonitis [Unknown]
  - Cholestasis [Unknown]
  - Death [Fatal]
